FAERS Safety Report 8933707 (Version 2)
Quarter: 2012Q4

REPORT INFORMATION
  Report Type: 
  Country: FR (occurrence: FR)
  Receive Date: 20121129
  Receipt Date: 20121217
  Transmission Date: 20130627
  Serious: Yes (Other)
  Sender: FDA-Public Use
  Company Number: FR-UCBSA-071541

PATIENT
  Age: 72 Year
  Sex: Male

DRUGS (11)
  1. NEUPRO [Suspect]
     Indication: PARKINSON^S DISEASE
     Dosage: ROUTE: TRANSCUTANEOUS
     Dates: start: 201202
  2. SINEMET [Suspect]
     Indication: PARKINSON^S DISEASE
     Dates: start: 1999
  3. AZILECT [Suspect]
     Indication: PARKINSON^S DISEASE
     Route: 048
     Dates: start: 20120529
  4. AZILECT [Suspect]
     Indication: PARKINSON^S DISEASE
     Route: 048
     Dates: start: 20091209, end: 201001
  5. MODOPAR [Suspect]
     Indication: PARKINSON^S DISEASE
     Route: 048
     Dates: start: 201103
  6. MANTADIX [Suspect]
     Indication: PARKINSON^S DISEASE
     Route: 048
     Dates: start: 201201
  7. APOKINON [Suspect]
     Indication: PARKINSON^S DISEASE
     Dates: start: 201206
  8. FENOFIBRATE [Concomitant]
     Dates: start: 2002
  9. ATHYMIL [Concomitant]
     Dates: start: 2007
  10. XATRAL [Concomitant]
     Dates: start: 2009
  11. FORLAX [Concomitant]
     Dates: start: 201206

REACTIONS (2)
  - Nodular melanoma [Recovered/Resolved]
  - Basal cell carcinoma [Unknown]
